FAERS Safety Report 5050102-4 (Version None)
Quarter: 2006Q3

REPORT INFORMATION
  Report Type: 
  Country: None (occurrence: None)
  Receive Date: 20060707
  Receipt Date: 20060622
  Transmission Date: 20061208
  Serious: Yes (Other)
  Sender: FDA-Public Use
  Company Number: FR-2006-016821

PATIENT
  Sex: Female

DRUGS (1)
  1. CAMPATH [Suspect]
     Indication: CHRONIC LYMPHOCYTIC LEUKAEMIA
     Dates: start: 20050425, end: 20050823

REACTIONS (2)
  - ABDOMINAL PAIN UPPER [None]
  - CHOLANGITIS SCLEROSING [None]
